FAERS Safety Report 12237305 (Version 1)
Quarter: 2016Q2

REPORT INFORMATION
  Report Type: Spontaneous
  Country: None (occurrence: None)
  Receive Date: 20160404
  Receipt Date: 20160404
  Transmission Date: 20160815
  Serious: Yes (Hospitalization)
  Sender: FDA-Public Use
  Company Number: None

PATIENT
  Age: 30 Year
  Sex: Female
  Weight: 48.99 kg

DRUGS (3)
  1. CIPROFLOXACIN. [Suspect]
     Active Substance: CIPROFLOXACIN
     Indication: URINARY TRACT INFECTION
     Dosage: 10 TABLET(S)
     Route: 048
     Dates: start: 20160305, end: 20160308
  2. MAGNESIUM [Concomitant]
     Active Substance: MAGNESIUM
  3. PROBIOTIC [Concomitant]
     Active Substance: PROBIOTICS NOS

REACTIONS (14)
  - Dyspnoea [None]
  - Paraesthesia [None]
  - Hypoaesthesia [None]
  - Dry mouth [None]
  - Muscle spasms [None]
  - Pain in extremity [None]
  - Neck pain [None]
  - Diarrhoea [None]
  - Tremor [None]
  - Heart rate increased [None]
  - Facial pain [None]
  - Amenorrhoea [None]
  - Dizziness [None]
  - Visual impairment [None]

NARRATIVE: CASE EVENT DATE: 20160308
